FAERS Safety Report 17711861 (Version 1)
Quarter: 2020Q2

REPORT INFORMATION
  Report Type: Spontaneous
  Country: GB (occurrence: GB)
  Receive Date: 20200427
  Receipt Date: 20200427
  Transmission Date: 20200714
  Serious: Yes (Other)
  Sender: FDA-Public Use
  Company Number: NVSC2020GB110259

PATIENT
  Age: 60 Year
  Sex: Female
  Weight: 57.6 kg

DRUGS (3)
  1. PARACETAMOL [Suspect]
     Active Substance: ACETAMINOPHEN
     Indication: ABDOMINAL PAIN
     Dosage: 4000 MG, QD
     Route: 048
     Dates: start: 20190801, end: 20190828
  2. SERC [Concomitant]
     Indication: MENIERE^S DISEASE
     Dosage: 8 MG (3X8MG DAILY (UP TO 6 TIMES DAILY IF REQUIRED))
     Route: 065
     Dates: start: 201007
  3. SERTRALINE [Concomitant]
     Active Substance: SERTRALINE HYDROCHLORIDE
     Indication: DEPRESSION
     Dosage: 50 MG, QD
     Route: 065
     Dates: start: 20190516

REACTIONS (6)
  - Sensitive skin [Recovered/Resolved]
  - Paraesthesia [Recovered/Resolved]
  - Pruritus [Recovered/Resolved]
  - Headache [Recovered/Resolved]
  - Skin haemorrhage [Recovered/Resolved]
  - Arthralgia [Recovered/Resolved]

NARRATIVE: CASE EVENT DATE: 20190815
